FAERS Safety Report 4674007-3 (Version None)
Quarter: 2005Q2

REPORT INFORMATION
  Report Type: 
  Country: None (occurrence: None)
  Receive Date: 20050525
  Receipt Date: 20050511
  Transmission Date: 20051028
  Serious: Yes (Hospitalization)
  Sender: FDA-Public Use
  Company Number: 2005-04-2114

PATIENT
  Age: 57 Year
  Sex: Male

DRUGS (4)
  1. CLARINASE (LORATADINE 10MG / PSEUDOEPHEDRINE 240MG) TABLETS [Suspect]
     Indication: NASAL CONGESTION
     Dosage: 1 TB QD ORAL
     Route: 048
     Dates: start: 20050330, end: 20050401
  2. TOCLASE EXPECTORANT ORAL SOLUTION [Suspect]
     Indication: COUGH
     Dosage: 60 ML QD ORAL
     Route: 048
  3. TOCLASE EXPECTORANT ORAL SOLUTION [Suspect]
     Indication: PHARYNGOLARYNGEAL PAIN
     Dosage: 60 ML QD ORAL
     Route: 048
  4. COVERSYL [Concomitant]

REACTIONS (12)
  - BLOOD PH INCREASED [None]
  - DYSPNOEA [None]
  - ELECTROCARDIOGRAM ABNORMAL [None]
  - HAEMOGLOBIN INCREASED [None]
  - HYPERTENSIVE CRISIS [None]
  - HYPERVENTILATION [None]
  - HYPOAESTHESIA [None]
  - INTERNATIONAL NORMALISED RATIO DECREASED [None]
  - LABORATORY TEST ABNORMAL [None]
  - PARAESTHESIA [None]
  - PCO2 DECREASED [None]
  - UPPER RESPIRATORY TRACT INFECTION [None]
